FAERS Safety Report 5950603-8 (Version None)
Quarter: 2008Q4

REPORT INFORMATION
  Report Type: 
  Country: None (occurrence: None)
  Receive Date: 20081022
  Receipt Date: 20080711
  Transmission Date: 20090506
  Serious: No
  Sender: FDA-Public Use
  Company Number: ALL1-2008-01771

PATIENT
  Age: 9 Year
  Sex: Male
  Weight: 24.5 kg

DRUGS (3)
  1. VYVANSE [Suspect]
     Indication: ATTENTION DEFICIT/HYPERACTIVITY DISORDER
     Dosage: 30 MG,1X/DAY:QD,ORAL; 20-25MG DAILY, ORAL
     Route: 048
     Dates: start: 20080101, end: 20080101
  2. VYVANSE [Suspect]
     Indication: ATTENTION DEFICIT/HYPERACTIVITY DISORDER
     Dosage: 30 MG,1X/DAY:QD,ORAL; 20-25MG DAILY, ORAL
     Route: 048
     Dates: start: 20080101
  3. MULTIVITAMIN /00831701/ (VITAMINS NOS) [Concomitant]

REACTIONS (3)
  - ANOREXIA [None]
  - DRUG PRESCRIBING ERROR [None]
  - WEIGHT DECREASED [None]
